FAERS Safety Report 10151438 (Version 3)
Quarter: 2014Q2

REPORT INFORMATION
  Report Type: Spontaneous
  Country: IT (occurrence: IT)
  Receive Date: 20140504
  Receipt Date: 20140623
  Transmission Date: 20141212
  Serious: Yes (Hospitalization)
  Sender: FDA-Public Use
  Company Number: IT-ROCHE-1391299

PATIENT
  Age: 51 Year
  Sex: Female

DRUGS (12)
  1. RIVOTRIL [Suspect]
     Indication: PRODUCT USED FOR UNKNOWN INDICATION
     Route: 048
     Dates: start: 20140313, end: 20140313
  2. TAVOR (ITALY) [Suspect]
     Indication: PRODUCT USED FOR UNKNOWN INDICATION
     Route: 048
     Dates: start: 20140313, end: 20140313
  3. SERENASE (ITALY) [Suspect]
     Indication: PRODUCT USED FOR UNKNOWN INDICATION
     Route: 048
     Dates: start: 20140313, end: 20140313
  4. SEROQUEL [Suspect]
     Indication: PRODUCT USED FOR UNKNOWN INDICATION
     Route: 048
     Dates: start: 20140313, end: 20140313
  5. BISOPROLOL [Concomitant]
  6. GABAPENTIN [Concomitant]
  7. ANTRA [Concomitant]
  8. COMBIVIR [Concomitant]
  9. PREZISTA [Concomitant]
  10. NORVIR [Concomitant]
  11. NEURONTIN (ITALY) [Concomitant]
  12. BACTRIM [Concomitant]

REACTIONS (4)
  - Acidosis [Recovering/Resolving]
  - Bradypnoea [Recovering/Resolving]
  - Coma [Recovering/Resolving]
  - Drug abuse [Unknown]
